FAERS Safety Report 6413923-9 (Version None)
Quarter: 2009Q4

REPORT INFORMATION
  Report Type: 
  Country: None (occurrence: None)
  Receive Date: 20091026
  Receipt Date: 20091019
  Transmission Date: 20100525
  Serious: Yes (Other)
  Sender: FDA-Public Use
  Company Number: US-JNJFOC-20090803826

PATIENT
  Sex: Female

DRUGS (7)
  1. DURAGESIC-100 [Suspect]
     Route: 062
  2. DURAGESIC-100 [Suspect]
     Route: 062
  3. DURAGESIC-100 [Suspect]
     Route: 062
  4. DURAGESIC-100 [Suspect]
     Indication: PAIN
     Route: 062
  5. FIORICET [Concomitant]
     Indication: HEADACHE
  6. OXYCODONE [Concomitant]
     Indication: PAIN
  7. MS CONTIN [Concomitant]
     Route: 065

REACTIONS (7)
  - APPLICATION SITE RASH [None]
  - APPLICATION SITE REACTION [None]
  - DRUG DOSE OMISSION [None]
  - INAPPROPRIATE SCHEDULE OF DRUG ADMINISTRATION [None]
  - PAIN [None]
  - PRURITUS [None]
  - WITHDRAWAL SYNDROME [None]
